FAERS Safety Report 13801952 (Version 1)
Quarter: 2017Q3

REPORT INFORMATION
  Report Type: Spontaneous
  Country: US (occurrence: US)
  Receive Date: 20170727
  Receipt Date: 20170727
  Transmission Date: 20171127
  Serious: No
  Sender: FDA-Public Use
  Company Number: US-BAYER-2017-143692

PATIENT
  Age: 78 Year
  Sex: Male
  Weight: 79 kg

DRUGS (3)
  1. MIRALAX [Suspect]
     Active Substance: POLYETHYLENE GLYCOL 3350
     Indication: CONSTIPATION
  2. MIRALAX [Suspect]
     Active Substance: POLYETHYLENE GLYCOL 3350
     Indication: GASTROINTESTINAL DISORDER
     Dosage: 1 DF, PRN
     Route: 048
     Dates: start: 2016, end: 2016
  3. CASCARA SAGRADA [Concomitant]
     Active Substance: FRANGULA PURSHIANA BARK
     Indication: CONSTIPATION

REACTIONS (3)
  - Underdose [Unknown]
  - Labelled drug-disease interaction medication error [Unknown]
  - Diarrhoea [Recovered/Resolved]

NARRATIVE: CASE EVENT DATE: 2016
